FAERS Safety Report 14675084 (Version 1)
Quarter: 2018Q1

REPORT INFORMATION
  Report Type: Spontaneous
  Country: GB (occurrence: GB)
  Receive Date: 20180323
  Receipt Date: 20180323
  Transmission Date: 20180509
  Serious: Yes (Hospitalization)
  Sender: FDA-Public Use
  Company Number: GB-PFIZER INC-2018113382

PATIENT
  Age: 87 Year
  Sex: Male

DRUGS (10)
  1. FUROSEMIDE. [Concomitant]
     Active Substance: FUROSEMIDE
     Indication: PULMONARY OEDEMA
     Dosage: 40 MG, 1X/DAY MORNING
     Route: 048
     Dates: start: 20180116
  2. CITALOPRAM [Concomitant]
     Active Substance: CITALOPRAM HYDROBROMIDE
     Dosage: 20 MG, 1X/DAY NIGHT
     Route: 048
  3. ATENOLOL. [Concomitant]
     Active Substance: ATENOLOL
     Dosage: 25 MG, 1X/DAY
     Route: 048
  4. NUTILIS AQUA [Concomitant]
     Dosage: UNK
     Route: 048
  5. DONEPEZIL. [Concomitant]
     Active Substance: DONEPEZIL
     Dosage: 10 MG, 1X/DAY
     Route: 048
  6. ZOLEDRONIC ACID [Suspect]
     Active Substance: ZOLEDRONIC ACID
     Indication: OSTEOPOROSIS PROPHYLAXIS
     Dosage: UNK 5MG/100ML
     Route: 051
     Dates: start: 20180125, end: 20180125
  7. SIMVASTATIN. [Concomitant]
     Active Substance: SIMVASTATIN
     Dosage: 20 MG, 1X/DAY NIGHT
     Route: 048
  8. ALFUZOSIN HYDROCHLORIDE. [Concomitant]
     Active Substance: ALFUZOSIN HYDROCHLORIDE
     Dosage: 10 MG, 1X/DAY NIGHT
     Route: 048
  9. ADCAL D3 [Concomitant]
     Active Substance: CALCIUM CARBONATE\CHOLECALCIFEROL
     Dosage: 2 DF, 1X/DAY
     Route: 048
  10. TAMIFLU [Concomitant]
     Active Substance: OSELTAMIVIR PHOSPHATE
     Indication: UPPER RESPIRATORY TRACT INFECTION
     Dosage: UNK
     Dates: start: 20180116

REACTIONS (17)
  - Diarrhoea [Recovered/Resolved]
  - Headache [Recovered/Resolved]
  - Anal incontinence [Recovered/Resolved]
  - Thinking abnormal [Recovered/Resolved]
  - Abdominal pain upper [Recovered/Resolved]
  - Retching [Recovered/Resolved]
  - Hiccups [Recovered/Resolved]
  - Pyrexia [Recovered/Resolved]
  - Confusional state [Recovered/Resolved]
  - Discomfort [Not Recovered/Not Resolved]
  - Micturition urgency [Recovered/Resolved]
  - Agitation [Recovered/Resolved]
  - Defaecation urgency [Recovered/Resolved]
  - Hallucination [Recovered/Resolved]
  - Hyperventilation [Recovered/Resolved]
  - Unresponsive to stimuli [Recovered/Resolved]
  - Urinary incontinence [Recovered/Resolved]

NARRATIVE: CASE EVENT DATE: 20180126
